FAERS Safety Report 20104003 (Version 1)
Quarter: 2021Q4

REPORT INFORMATION
  Report Type: Spontaneous
  Country: CA (occurrence: None)
  Receive Date: 20211123
  Receipt Date: 20211123
  Transmission Date: 20220303
  Serious: Yes (Hospitalization)
  Sender: FDA-Public Use
  Company Number: CA-FRESENIUS KABI-FK202112966

PATIENT
  Age: 84 Year
  Sex: Female

DRUGS (1)
  1. CLINDAMYCIN [Suspect]
     Active Substance: CLINDAMYCIN
     Indication: Oral infection
     Route: 065

REACTIONS (3)
  - Leukocytosis [Unknown]
  - Diarrhoea [Unknown]
  - Clostridium test positive [Unknown]
